FAERS Safety Report 12066148 (Version 1)
Quarter: 2016Q1

REPORT INFORMATION
  Report Type: Spontaneous
  Country: US (occurrence: None)
  Receive Date: 20160210
  Receipt Date: 20160210
  Transmission Date: 20160526
  Serious: Yes (Death, Other)
  Sender: FDA-Public Use
  Company Number: None

PATIENT
  Age: 93 Year
  Sex: Male
  Weight: 88.45 kg

DRUGS (1)
  1. ELIQUIS [Suspect]
     Active Substance: APIXABAN
     Indication: CEREBROVASCULAR ACCIDENT PROPHYLAXIS
     Dosage: 1 TABLET, TWICE DAILY, TAKEN BY MOUTH
     Dates: start: 20141114, end: 20160127

REACTIONS (5)
  - Nausea [None]
  - Wound infection [None]
  - Haematemesis [None]
  - Cellulitis [None]
  - Chest pain [None]

NARRATIVE: CASE EVENT DATE: 20160127
